FAERS Safety Report 8842114 (Version 1)
Quarter: 2012Q4

REPORT INFORMATION
  Report Type: Spontaneous
  Country: US (occurrence: None)
  Receive Date: 20121015
  Receipt Date: 20121015
  Transmission Date: 20130627
  Serious: Yes (Other)
  Sender: FDA-Public Use
  Company Number: None

PATIENT
  Age: 56 Year
  Sex: Male

DRUGS (2)
  1. LEVOFLOXACIN [Suspect]
     Indication: SINUS INFECTION
     Dates: start: 20120703
  2. LEVOFLOXACIN [Suspect]
     Indication: LUNG INFECTION
     Dates: start: 20120703

REACTIONS (15)
  - Jaw disorder [None]
  - Vision blurred [None]
  - Vein disorder [None]
  - Insomnia [None]
  - Tremor [None]
  - Palpitations [None]
  - Muscle twitching [None]
  - Suicidal ideation [None]
  - Personality change [None]
  - Toothache [None]
  - Nodule [None]
  - Rash [None]
  - Joint crepitation [None]
  - Muscle tightness [None]
  - Unevaluable event [None]
